FAERS Safety Report 20368354 (Version 8)
Quarter: 2025Q1

REPORT INFORMATION
  Report Type: Report from Study
  Country: US (occurrence: US)
  Receive Date: 20220124
  Receipt Date: 20250224
  Transmission Date: 20250409
  Serious: Yes (Hospitalization, Other)
  Sender: AUROBINDO
  Company Number: US-AUROBINDO-AUR-APL-2022-001045

PATIENT
  Sex: Female
  Weight: 92.4 kg

DRUGS (7)
  1. BELINOSTAT [Suspect]
     Active Substance: BELINOSTAT
     Indication: Acute myeloid leukaemia
     Route: 065
     Dates: start: 20210927
  2. BELINOSTAT [Suspect]
     Active Substance: BELINOSTAT
     Route: 065
     Dates: start: 20210927
  3. BELINOSTAT [Suspect]
     Active Substance: BELINOSTAT
     Route: 065
     Dates: start: 20210927, end: 20210927
  4. BELINOSTAT [Suspect]
     Active Substance: BELINOSTAT
     Dosage: 1000 MG/M2, ONCE A DAY ON DAYS 1 TO 5
     Route: 042
     Dates: start: 20210927, end: 20210927
  5. PEVONEDISTAT HYDROCHLORIDE [Suspect]
     Active Substance: PEVONEDISTAT HYDROCHLORIDE
     Indication: Product used for unknown indication
     Route: 065
     Dates: start: 20210927
  6. PEVONEDISTAT HYDROCHLORIDE [Suspect]
     Active Substance: PEVONEDISTAT HYDROCHLORIDE
     Route: 065
     Dates: start: 20210927
  7. PEVONEDISTAT HYDROCHLORIDE [Suspect]
     Active Substance: PEVONEDISTAT HYDROCHLORIDE
     Dosage: 50 MG/M2, ONCE A DAY ON DAYS 1,3 AND 5
     Route: 042
     Dates: start: 20210927, end: 20210927

REACTIONS (9)
  - Angina pectoris [Recovered/Resolved]
  - Palpitations [Recovered/Resolved]
  - Hypertension [Unknown]
  - Electrocardiogram QT prolonged [Unknown]
  - Nausea [Unknown]
  - Pruritus [Unknown]
  - Non-cardiac chest pain [Unknown]
  - Urticaria [Unknown]
  - Fall [Unknown]

NARRATIVE: CASE EVENT DATE: 20210927
